FAERS Safety Report 8265390-0 (Version None)
Quarter: 2012Q2

REPORT INFORMATION
  Report Type: 
  Country: None (occurrence: None)
  Receive Date: 20120404
  Receipt Date: 20120320
  Transmission Date: 20120825
  Serious: Yes (Other)
  Sender: FDA-Public Use
  Company Number: TPA2012A01557

PATIENT
  Age: 71 Year
  Sex: Female
  Weight: 145.151 kg

DRUGS (4)
  1. ACTOS [Suspect]
     Indication: TYPE 2 DIABETES MELLITUS
     Dosage: 15 MG, 1 IN 1 D, PER ORAL 15 MG, 1 IN 1 D, PER ORAL
     Route: 048
     Dates: start: 20060101, end: 20070101
  2. ACTOS [Suspect]
     Indication: TYPE 2 DIABETES MELLITUS
     Dosage: 15 MG, 1 IN 1 D, PER ORAL 15 MG, 1 IN 1 D, PER ORAL
     Route: 048
     Dates: start: 20070101
  3. JANUVIA [Concomitant]
  4. GLIPIZIDE [Concomitant]

REACTIONS (2)
  - BLISTER [None]
  - OEDEMA PERIPHERAL [None]
